FAERS Safety Report 23059001 (Version 2)
Quarter: 2023Q4

REPORT INFORMATION
  Report Type: Spontaneous
  Country: JP (occurrence: JP)
  Receive Date: 20231012
  Receipt Date: 20231101
  Transmission Date: 20240110
  Serious: Yes (Death, Other)
  Sender: FDA-Public Use
  Company Number: JP-GILEAD-2023-0636900

PATIENT
  Age: 8 Decade
  Sex: Male
  Weight: 62 kg

DRUGS (11)
  1. VEMLIDY [Suspect]
     Active Substance: TENOFOVIR ALAFENAMIDE FUMARATE
     Indication: Hepatic cirrhosis
     Dosage: 25 MG, QD
     Route: 048
     Dates: start: 20211110, end: 20230118
  2. VEMLIDY [Suspect]
     Active Substance: TENOFOVIR ALAFENAMIDE FUMARATE
     Indication: Hepatitis B
  3. TECENTRIQ [Suspect]
     Active Substance: ATEZOLIZUMAB
     Indication: Product used for unknown indication
     Dosage: UNK
     Route: 065
     Dates: start: 20210616, end: 20230126
  4. AVASTIN [Suspect]
     Active Substance: BEVACIZUMAB
     Indication: Product used for unknown indication
     Dosage: UNK
     Route: 065
     Dates: start: 20210616, end: 20230126
  5. ENTECAVIR [Concomitant]
     Active Substance: ENTECAVIR
     Dosage: UNK, QOD
     Dates: end: 20211109
  6. ENTECAVIR [Concomitant]
     Active Substance: ENTECAVIR
     Dosage: UNK, Q3DAYS
     Dates: start: 20230118
  7. ENTRESTO [Concomitant]
     Active Substance: SACUBITRIL\VALSARTAN
     Dosage: 200 MG, BID
     Route: 048
     Dates: start: 20210922, end: 20230308
  8. CARVEDILOL [Concomitant]
     Active Substance: CARVEDILOL
     Dosage: 10 MG, BID
     Route: 048
     Dates: start: 20210922, end: 20230308
  9. SAMSCA [Concomitant]
     Active Substance: TOLVAPTAN
     Dosage: UNK
     Route: 048
     Dates: start: 20230205, end: 20230308
  10. AZOSEMIDE [Concomitant]
     Active Substance: AZOSEMIDE
     Dosage: UNK
     Route: 048
     Dates: start: 20221026, end: 20230308
  11. ESAXERENONE [Concomitant]
     Active Substance: ESAXERENONE
     Dosage: 0.625 MG, QD
     Route: 048
     Dates: start: 20210922, end: 20230308

REACTIONS (2)
  - Hepatocellular carcinoma [Fatal]
  - Renal disorder [Recovering/Resolving]

NARRATIVE: CASE EVENT DATE: 20230320
